FAERS Safety Report 21136305 (Version 3)
Quarter: 2022Q3

REPORT INFORMATION
  Report Type: Report from Study
  Country: US (occurrence: US)
  Receive Date: 20220727
  Receipt Date: 20220823
  Transmission Date: 20221027
  Serious: Yes (Hospitalization, Other)
  Sender: FDA-Public Use
  Company Number: US-SERVIER-S22007223

PATIENT

DRUGS (33)
  1. CYTARABINE [Suspect]
     Active Substance: CYTARABINE
     Indication: Acute lymphocytic leukaemia
     Dosage: 70 MG, OTHER
     Route: 037
     Dates: start: 20220315, end: 20220315
  2. CYTARABINE [Suspect]
     Active Substance: CYTARABINE
     Dosage: 115 MG, QD
     Route: 058
     Dates: start: 20220621, end: 20220624
  3. CYTARABINE [Suspect]
     Active Substance: CYTARABINE
     Dosage: 115 MG, QD
     Route: 058
     Dates: start: 20220628, end: 20220701
  4. MERCAPTOPURINE [Suspect]
     Active Substance: MERCAPTOPURINE
     Indication: Acute lymphocytic leukaemia
     Dosage: 100 MG, QD
     Route: 048
     Dates: start: 20220621, end: 20220704
  5. CYCLOPHOSPHAMIDE [Suspect]
     Active Substance: CYCLOPHOSPHAMIDE
     Indication: Acute lymphocytic leukaemia
     Dosage: 1540 MG, PRN
     Route: 042
     Dates: start: 20220621, end: 20220621
  6. METHOTREXATE [Suspect]
     Active Substance: METHOTREXATE
     Indication: Acute lymphocytic leukaemia
     Dosage: 15 MG, OTHER
     Route: 037
     Dates: start: 20220325, end: 20220325
  7. METHOTREXATE [Suspect]
     Active Substance: METHOTREXATE
     Dosage: 15 MG, PRN
     Route: 037
     Dates: start: 20220621, end: 20220621
  8. METHOTREXATE [Suspect]
     Active Substance: METHOTREXATE
     Dosage: 15 MG, PRN
     Route: 037
     Dates: start: 20220628, end: 20220628
  9. METHOTREXATE [Suspect]
     Active Substance: METHOTREXATE
     Dosage: 15 MG, PRN
     Route: 037
     Dates: start: 20220705, end: 20220705
  10. DAUNORUBICIN [Concomitant]
     Active Substance: DAUNORUBICIN
     Indication: Acute lymphocytic leukaemia
     Dosage: 42 MG, 1X/WEEK
     Route: 042
     Dates: start: 20220317, end: 20220317
  11. DAUNORUBICIN [Concomitant]
     Active Substance: DAUNORUBICIN
     Dosage: 42 MG, 1X/WEEK
     Route: 042
     Dates: start: 20220324, end: 20220324
  12. DAUNORUBICIN [Concomitant]
     Active Substance: DAUNORUBICIN
     Dosage: 41 MG, 1X/WEEK
     Route: 042
     Dates: start: 20220331, end: 20220331
  13. DAUNORUBICIN [Concomitant]
     Active Substance: DAUNORUBICIN
     Dosage: 41 MG, 1X/WEEK
     Route: 042
     Dates: start: 20220407, end: 20220407
  14. DEXAMETHASONE [Concomitant]
     Active Substance: DEXAMETHASONE
     Indication: Acute lymphocytic leukaemia
     Dosage: 4 MG, BID
     Route: 048
     Dates: start: 20220319, end: 20220323
  15. DEXAMETHASONE [Concomitant]
     Active Substance: DEXAMETHASONE
     Dosage: 4 MG, BID
     Route: 048
     Dates: start: 20220331, end: 20220406
  16. VINCRISTINE [Concomitant]
     Active Substance: VINCRISTINE
     Indication: Acute lymphocytic leukaemia
     Dosage: 2 MG, 1X/WEEK
     Route: 042
     Dates: start: 20220324, end: 20220324
  17. VINCRISTINE [Concomitant]
     Active Substance: VINCRISTINE
     Dosage: 2 MG, 1X/WEEK
     Route: 042
     Dates: start: 20220317, end: 20220317
  18. VINCRISTINE [Concomitant]
     Active Substance: VINCRISTINE
     Dosage: 2 MG, 1X/WEEK
     Route: 042
     Dates: start: 20220331, end: 20220331
  19. VINCRISTINE [Concomitant]
     Active Substance: VINCRISTINE
     Dosage: 2 MG, 1X/WEEK
     Route: 042
     Dates: start: 20220407, end: 20220407
  20. VINCRISTINE [Concomitant]
     Active Substance: VINCRISTINE
     Dosage: 1 MG, PRN
     Route: 042
     Dates: start: 20220705, end: 20220705
  21. ALBUTEROL [Concomitant]
     Active Substance: ALBUTEROL
     Indication: Asthma
     Dosage: 2 DF, PRN
     Route: 048
     Dates: start: 2000
  22. LEVOTHYROXINE [Concomitant]
     Active Substance: LEVOTHYROXINE
     Indication: Hypothyroidism
     Dosage: 75 ?G, QD
     Route: 048
     Dates: start: 2002
  23. MONTELUKAST [Concomitant]
     Active Substance: MONTELUKAST SODIUM
     Indication: Asthma
     Dosage: 10 MG, QD
     Route: 048
     Dates: start: 20211115
  24. URSODIOL [Concomitant]
     Active Substance: URSODIOL
     Indication: Cholelithiasis
     Dosage: 250 MG, TID
     Route: 048
     Dates: start: 20220317
  25. SENNA [Concomitant]
     Active Substance: SENNA LEAF\SENNOSIDES\SENNOSIDES A AND B
     Indication: Constipation prophylaxis
     Dosage: 8.6 MG, PRN
     Route: 048
     Dates: start: 20220319
  26. ONDANSETRON [Concomitant]
     Active Substance: ONDANSETRON
     Indication: Prophylaxis of nausea and vomiting
     Dosage: 8 MG, PRN
     Route: 048
     Dates: start: 20220319
  27. INSULIN ASPART [Concomitant]
     Active Substance: INSULIN ASPART
     Indication: Hyperglycaemia
     Dosage: UNK, TID
     Route: 051
     Dates: start: 20220319
  28. ACYCLOVIR [Concomitant]
     Active Substance: ACYCLOVIR
     Indication: Infection prophylaxis
     Dosage: 800 MG, BID
     Route: 048
     Dates: start: 20220319
  29. ALLOPURINOL [Concomitant]
     Active Substance: ALLOPURINOL
     Indication: Tumour lysis syndrome
     Dosage: 300 MG, QD
     Route: 048
     Dates: start: 20220319
  30. ALLOPURINOL [Concomitant]
     Active Substance: ALLOPURINOL
     Indication: Prophylaxis
  31. LEVOFLOXACIN [Concomitant]
     Active Substance: LEVOFLOXACIN
     Indication: Infection prophylaxis
     Dosage: 70 MG, QD
     Route: 048
     Dates: start: 20220319
  32. POLYETHYLENE GLYCOL [Concomitant]
     Active Substance: POLYETHYLENE GLYCOL
     Indication: Constipation prophylaxis
     Dosage: 17 G, PRN
     Route: 048
     Dates: start: 20220319
  33. SULFAMETHOXAZOLE\TRIMETHOPRIM [Concomitant]
     Active Substance: SULFAMETHOXAZOLE\TRIMETHOPRIM
     Indication: Infection prophylaxis
     Dosage: 160 MG, OTHER
     Route: 048
     Dates: start: 20220321

REACTIONS (3)
  - Cerebrovascular accident [Recovered/Resolved]
  - Febrile neutropenia [Recovered/Resolved]
  - Atrial fibrillation [Recovering/Resolving]

NARRATIVE: CASE EVENT DATE: 20220706
